FAERS Safety Report 6335814-4 (Version None)
Quarter: 2009Q3

REPORT INFORMATION
  Report Type: 
  Country: None (occurrence: None)
  Receive Date: 20090828
  Receipt Date: 20090819
  Transmission Date: 20100115
  Serious: Yes (Other)
  Sender: FDA-Public Use
  Company Number: 2009SP021504

PATIENT
  Age: 64 Year
  Sex: Female

DRUGS (9)
  1. CORICIDIN HBP CHEST CONGESTION + COUGH (DEXTROMETHORPHAN HYDROBROMIDE/ [Suspect]
     Indication: COUGH
     Dosage: 2 MG; ONCE; PO
     Route: 048
     Dates: start: 20090815
  2. FENTANYL TRANSDERMAL SYSTEM [Suspect]
     Indication: DRUG USE FOR UNKNOWN INDICATION
  3. FENTANYL TRANSDERMAL SYSTEM [Suspect]
     Indication: FEELING COLD
  4. FENTANYL TRANSDERMAL SYSTEM [Suspect]
     Indication: PYREXIA
  5. HYZAAR [Concomitant]
  6. LOPRESSOR [Concomitant]
  7. ZOCAR [Concomitant]
  8. VICODIN [Suspect]
  9. JANUVIA [Suspect]

REACTIONS (3)
  - LOSS OF CONSCIOUSNESS [None]
  - MEMORY IMPAIRMENT [None]
  - OCULOGYRIC CRISIS [None]
